FAERS Safety Report 8614307-5 (Version None)
Quarter: 2012Q3

REPORT INFORMATION
  Report Type: 
  Country: None (occurrence: None)
  Receive Date: 20120823
  Receipt Date: 20120813
  Transmission Date: 20120928
  Serious: Yes (Life-Threatening, Other)
  Sender: FDA-Public Use
  Company Number: FR-009507513-2012SP019867

PATIENT

DRUGS (3)
  1. ROCURONIUM BROMIDE [Suspect]
     Indication: GENERAL ANAESTHESIA
     Dosage: 40 MG, ONCE
     Route: 042
     Dates: start: 20120320, end: 20120320
  2. ULTIVA [Suspect]
     Indication: GENERAL ANAESTHESIA
     Dosage: 50 ?G, ONCE
     Route: 042
     Dates: start: 20120320, end: 20120320
  3. DIPRIVAN [Suspect]
     Indication: GENERAL ANAESTHESIA
     Dosage: 200 MG, ONCE
     Route: 042
     Dates: start: 20120320, end: 20120320

REACTIONS (3)
  - ANAPHYLACTIC SHOCK [None]
  - CIRCULATORY COLLAPSE [None]
  - CARDIO-RESPIRATORY ARREST [None]
